FAERS Safety Report 12315150 (Version 1)
Quarter: 2016Q2

REPORT INFORMATION
  Report Type: Report from Study
  Country: BR (occurrence: BR)
  Receive Date: 20160428
  Receipt Date: 20160428
  Transmission Date: 20160815
  Serious: Yes (Other)
  Sender: FDA-Public Use
  Company Number: BR-ABBVIE-16K-020-1611746-00

PATIENT
  Age: 48 Year
  Sex: Male
  Weight: 74.5 kg

DRUGS (1)
  1. HUMIRA [Suspect]
     Active Substance: ADALIMUMAB
     Indication: ANKYLOSING SPONDYLITIS
     Route: 058
     Dates: start: 20131001

REACTIONS (10)
  - Urinary bladder polyp [Recovered/Resolved]
  - Immunodeficiency [Not Recovered/Not Resolved]
  - Sepsis [Unknown]
  - Genital herpes [Recovering/Resolving]
  - Abdominal pain upper [Not Recovered/Not Resolved]
  - Pain [Not Recovered/Not Resolved]
  - Musculoskeletal stiffness [Not Recovered/Not Resolved]
  - Drug effect decreased [Unknown]
  - Fungal infection [Recovering/Resolving]
  - Nasopharyngitis [Unknown]

NARRATIVE: CASE EVENT DATE: 201406
